FAERS Safety Report 12992803 (Version 1)
Quarter: 2016Q4

REPORT INFORMATION
  Report Type: Spontaneous
  Country: US (occurrence: US)
  Receive Date: 20161202
  Receipt Date: 20161202
  Transmission Date: 20170207
  Serious: Yes (Other)
  Sender: FDA-Public Use
  Company Number: US-RECORDATI RARE DISEASES-US-R13005-16-00289

PATIENT
  Age: 22 Year
  Sex: Male

DRUGS (5)
  1. PANHEMATIN [Suspect]
     Active Substance: HEMIN
     Indication: PORPHYRIA ACUTE
     Route: 042
     Dates: start: 20161015, end: 20161016
  2. ANXIETY DRUG [Concomitant]
     Indication: HOSPITALISATION
  3. ANXIETY DRUG [Concomitant]
     Indication: PAIN
     Route: 065
  4. DILAUDID [Concomitant]
     Active Substance: HYDROMORPHONE HYDROCHLORIDE
     Indication: PORPHYRIA ACUTE
     Route: 065
  5. GLUCOSE [Concomitant]
     Active Substance: DEXTROSE
     Indication: PORPHYRIA ACUTE
     Route: 065

REACTIONS (2)
  - Systemic infection [Recovered/Resolved]
  - Off label use [Unknown]
